FAERS Safety Report 10964680 (Version 1)
Quarter: 2015Q1

REPORT INFORMATION
  Report Type: Spontaneous
  Country: US (occurrence: US)
  Receive Date: 20150329
  Receipt Date: 20150329
  Transmission Date: 20150721
  Serious: No
  Sender: FDA-Public Use
  Company Number: US-ASTRAZENECA-2015SE27522

PATIENT
  Sex: Male
  Weight: 79.4 kg

DRUGS (1)
  1. BYDUREON [Suspect]
     Active Substance: EXENATIDE
     Indication: TYPE 2 DIABETES MELLITUS
     Route: 058
     Dates: start: 201501, end: 2015

REACTIONS (5)
  - Decreased appetite [Recovered/Resolved]
  - Adverse event [Recovered/Resolved]
  - Headache [Recovered/Resolved]
  - Panic disorder [Recovered/Resolved]
  - Malaise [Recovered/Resolved]
